FAERS Safety Report 21456531 (Version 2)
Quarter: 2022Q4

REPORT INFORMATION
  Report Type: Spontaneous
  Country: DE (occurrence: DE)
  Receive Date: 20221014
  Receipt Date: 20221111
  Transmission Date: 20230113
  Serious: Yes (Hospitalization)
  Sender: FDA-Public Use
  Company Number: DE-ALLERGAN-2233532US

PATIENT
  Sex: Female
  Weight: 75 kg

DRUGS (15)
  1. PREDNISOLONE [Suspect]
     Active Substance: PREDNISOLONE
     Indication: Product used for unknown indication
  2. BISOPROLOL [Concomitant]
     Active Substance: BISOPROLOL
     Dosage: 5 MG, BID
  3. FLUTICASONE FUROATE\SALMETEROL XINAFOATE [Concomitant]
     Active Substance: FLUTICASONE FUROATE\SALMETEROL XINAFOATE
     Dosage: 2-0-2-0
  4. EDOXABAN [Concomitant]
     Active Substance: EDOXABAN
     Dosage: 60 MG, QAM
  5. ATORVASTATIN [Concomitant]
     Active Substance: ATORVASTATIN
     Dosage: 20 MG, QPM
  6. VALPROIC ACID [Concomitant]
     Active Substance: VALPROIC ACID
     Dosage: 500 MG, BID
  7. LEVOTHYROXINE SODIUM [Concomitant]
     Active Substance: LEVOTHYROXINE SODIUM
     Dosage: 50 ?G, QAM
  8. LAMOTRIGINE [Concomitant]
     Active Substance: LAMOTRIGINE
     Dosage: 0.5-0-0-1
  9. LERCANIDIPINE [Concomitant]
     Active Substance: LERCANIDIPINE
     Dosage: 10 MG, QAM
  10. PANTOPRAZOLE [Concomitant]
     Active Substance: PANTOPRAZOLE
     Dosage: 40 MG, QAM
  11. TROSPIUM CHLORIDE [Concomitant]
     Active Substance: TROSPIUM CHLORIDE
     Dosage: 20 MG, QPM
  12. FENOTEROL\IPRATROPIUM BROMIDE [Concomitant]
     Active Substance: FENOTEROL\IPRATROPIUM BROMIDE
     Dosage: UNK, PRN
  13. NIFEDIPINE [Concomitant]
     Active Substance: NIFEDIPINE
     Dosage: 5 MG
  14. ESTRIOL [Concomitant]
     Active Substance: ESTRIOL
     Dosage: 1 MG, 2-3 TIMES/WEEK
  15. SPIRIVA RESPIMAT [Concomitant]
     Active Substance: TIOTROPIUM BROMIDE
     Dosage: 2.5 ?G, BID

REACTIONS (8)
  - Hypertensive crisis [Unknown]
  - Angina pectoris [Unknown]
  - Atrial fibrillation [Unknown]
  - Palpitations [Unknown]
  - Palpitations [Unknown]
  - Hypertension [Unknown]
  - Chest discomfort [Unknown]
  - Tachycardia [Unknown]
